FAERS Safety Report 4297488-6 (Version None)
Quarter: 2004Q1

REPORT INFORMATION
  Report Type: 
  Country: None (occurrence: None)
  Receive Date: 20040218
  Receipt Date: 20040130
  Transmission Date: 20041129
  Serious: Yes (Hospitalization)
  Sender: FDA-Public Use
  Company Number: ES-GLAXOSMITHKLINE-B0321846A

PATIENT
  Age: 37 Year
  Sex: Male

DRUGS (2)
  1. ZYNTABAC [Suspect]
     Indication: EX-SMOKER
     Route: 048
     Dates: start: 20040101, end: 20040127
  2. NO CONCURRENT MEDICATION [Concomitant]

REACTIONS (6)
  - CHEST PAIN [None]
  - FACE OEDEMA [None]
  - MUSCLE SPASMS [None]
  - OEDEMA PERIPHERAL [None]
  - PRURITUS GENERALISED [None]
  - RASH [None]
